FAERS Safety Report 7347979-6 (Version None)
Quarter: 2011Q1

REPORT INFORMATION
  Report Type: 
  Country: None (occurrence: None)
  Receive Date: 20110311
  Receipt Date: 20110225
  Transmission Date: 20110831
  Serious: Yes (Other)
  Sender: FDA-Public Use
  Company Number: US-BAYER-2011-022085

PATIENT
  Sex: Female
  Weight: 72.562 kg

DRUGS (2)
  1. YASMIN [Suspect]
     Indication: ORAL CONTRACEPTION
     Dosage: UNK
  2. OCELLA [Suspect]
     Indication: ORAL CONTRACEPTION

REACTIONS (6)
  - DYSPNOEA [None]
  - CHEST PAIN [None]
  - CHOLECYSTITIS [None]
  - BACK PAIN [None]
  - ABDOMINAL PAIN UPPER [None]
  - CHOLELITHIASIS [None]
